FAERS Safety Report 24022591 (Version 2)
Quarter: 2024Q2

REPORT INFORMATION
  Report Type: Spontaneous
  Country: CN (occurrence: CN)
  Receive Date: 20240627
  Receipt Date: 20240627
  Transmission Date: 20240716
  Serious: No
  Sender: FDA-Public Use
  Company Number: CN-ROCHE-3553644

PATIENT
  Age: 47 Year
  Sex: Female

DRUGS (1)
  1. ROZLYTREK [Suspect]
     Active Substance: ENTRECTINIB
     Indication: Non-small cell lung cancer
     Route: 048

REACTIONS (6)
  - Arthralgia [Recovered/Resolved]
  - Pericardial effusion [Recovering/Resolving]
  - Oedema peripheral [Recovering/Resolving]
  - Asthenia [Not Recovered/Not Resolved]
  - Pleural effusion [Recovering/Resolving]
  - Abdominal distension [Recovering/Resolving]
